FAERS Safety Report 23854883 (Version 1)
Quarter: 2024Q2

REPORT INFORMATION
  Report Type: Spontaneous
  Country: US (occurrence: US)
  Receive Date: 20240514
  Receipt Date: 20240514
  Transmission Date: 20240716
  Serious: Yes (Other)
  Sender: FDA-Public Use
  Company Number: US-ANIPHARMA-2024-US-015156

PATIENT
  Age: 76 Year
  Sex: Female

DRUGS (10)
  1. CORTICOTROPIN [Suspect]
     Active Substance: CORTICOTROPIN
     Indication: Gout
     Dosage: 0.5 MILLILITRE(S)- ML TWO TIMES PER WEEK
     Route: 058
  2. DEXAMETHASONE [Concomitant]
     Active Substance: DEXAMETHASONE
  3. POTASSIUM IODIDE [Concomitant]
     Active Substance: POTASSIUM IODIDE
  4. OMEPRAZOLE [Concomitant]
     Active Substance: DONEPEZIL HYDROCHLORIDE\OMEPRAZOLE\OMEPRAZOLE MAGNESIUM
  5. TORSEMIDE [Concomitant]
     Active Substance: TORSEMIDE
  6. ARMOUR THYROID [Concomitant]
     Active Substance: THYROID, PORCINE
  7. PROPRANOLOL HYDROCHLORIDE [Concomitant]
     Active Substance: PROPRANOLOL HYDROCHLORIDE
  8. FISH OIL [Concomitant]
     Active Substance: FISH OIL
  9. D3-1000 [Concomitant]
  10. SUCRALFATE [Concomitant]
     Active Substance: SUCRALFATE

REACTIONS (2)
  - Pneumonia [Unknown]
  - Product dose omission issue [Recovered/Resolved]

NARRATIVE: CASE EVENT DATE: 20240208
